FAERS Safety Report 16378181 (Version 1)
Quarter: 2019Q2

REPORT INFORMATION
  Report Type: Spontaneous
  Country: US (occurrence: US)
  Receive Date: 20190531
  Receipt Date: 20190531
  Transmission Date: 20190711
  Serious: No
  Sender: FDA-Public Use
  Company Number: US-HIKMA PHARMACEUTICALS USA INC.-US-H14001-18-04588

PATIENT
  Age: 85 Year
  Sex: Female

DRUGS (1)
  1. ROPINIROLE. [Suspect]
     Active Substance: ROPINIROLE
     Indication: ARTHRALGIA
     Route: 065

REACTIONS (3)
  - Therapeutic product effect incomplete [Unknown]
  - Off label use [Unknown]
  - Intentional product use issue [Unknown]
